FAERS Safety Report 6516532-6 (Version None)
Quarter: 2009Q4

REPORT INFORMATION
  Report Type: 
  Country: None (occurrence: None)
  Receive Date: 20091215
  Receipt Date: 20090709
  Transmission Date: 20100525
  Serious: Yes (Other)
  Sender: FDA-Public Use
  Company Number: ENTC2009-0190

PATIENT
  Age: 64 Year
  Sex: Female

DRUGS (8)
  1. STALEVO 100 [Suspect]
     Indication: PARKINSON'S DISEASE
     Dosage: 150 MG; UP TO 8 TABLETS PER DAY, ORAL
     Route: 048
     Dates: start: 20061001
  2. SINEMET [Concomitant]
  3. SINEMET CR [Concomitant]
  4. ZOLOFT [Concomitant]
  5. SYTHROID [Concomitant]
  6. ALLEGRA [Concomitant]
  7. ESTRADIOL [Concomitant]
  8. KLONOPIN [Concomitant]

REACTIONS (6)
  - ABASIA [None]
  - ASTHENIA [None]
  - CHROMATURIA [None]
  - DRUG INEFFECTIVE [None]
  - MALAISE [None]
  - PRODUCT QUALITY ISSUE [None]
